FAERS Safety Report 6934283-0 (Version None)
Quarter: 2010Q3

REPORT INFORMATION
  Report Type: 
  Country: None (occurrence: None)
  Receive Date: 20100820
  Receipt Date: 20100809
  Transmission Date: 20110219
  Serious: Yes (Hospitalization)
  Sender: FDA-Public Use
  Company Number: A0789567A

PATIENT
  Age: 44 Year
  Sex: Male
  Weight: 112.3 kg

DRUGS (15)
  1. AVANDIA [Suspect]
     Dosage: 8MG PER DAY
     Route: 048
     Dates: start: 20030101, end: 20090501
  2. ATENOLOL [Concomitant]
  3. HYDROCHLOROTHIAZIDE [Concomitant]
  4. PROTONIX [Concomitant]
  5. CLONIDINE [Concomitant]
  6. FLEXERIL [Concomitant]
  7. COREG [Concomitant]
  8. ZESTRIL [Concomitant]
  9. HYZAAR [Concomitant]
  10. MELATONIN [Concomitant]
  11. PEPCID [Concomitant]
  12. XANAX [Concomitant]
  13. LORTAB [Concomitant]
  14. CELEXA [Concomitant]
  15. NEURONTIN [Concomitant]

REACTIONS (5)
  - ACUTE CORONARY SYNDROME [None]
  - ARTERIOSCLEROSIS CORONARY ARTERY [None]
  - CORONARY ARTERY DISEASE [None]
  - ISCHAEMIC CARDIOMYOPATHY [None]
  - MYOCARDIAL INFARCTION [None]
